FAERS Safety Report 5109459-8 (Version None)
Quarter: 2006Q3

REPORT INFORMATION
  Report Type: 
  Country: None (occurrence: None)
  Receive Date: 20060920
  Receipt Date: 20060912
  Transmission Date: 20061208
  Serious: Yes (Hospitalization)
  Sender: FDA-Public Use
  Company Number: BE-ROXANE LABORATORIES, INC-2006-BP-10708RO

PATIENT
  Age: 60 Year
  Sex: Female

DRUGS (4)
  1. MEFLOQUINE [Suspect]
     Indication: MALARIA PROPHYLAXIS
     Dosage: 250 MG X 1 DOSE
     Route: 048
  2. ASPIRIN [Concomitant]
     Indication: ARTERIOSCLEROSIS
  3. BISOPROLOL FUMARATE [Concomitant]
     Indication: HYPERTENSION
  4. CIPROFIBRATUM [Concomitant]
     Indication: HYPERLIPIDAEMIA

REACTIONS (13)
  - BLOOD LACTATE DEHYDROGENASE INCREASED [None]
  - C-REACTIVE PROTEIN INCREASED [None]
  - CHILLS [None]
  - COUGH [None]
  - CYANOSIS [None]
  - DYSPNOEA [None]
  - HEADACHE [None]
  - HYPOXIA [None]
  - LEUKOCYTOSIS [None]
  - MYALGIA [None]
  - PNEUMONITIS [None]
  - PYREXIA [None]
  - TACHYCARDIA [None]
